FAERS Safety Report 6353711-5 (Version None)
Quarter: 2009Q3

REPORT INFORMATION
  Report Type: 
  Country: None (occurrence: None)
  Receive Date: 20090912
  Receipt Date: 20090622
  Transmission Date: 20100115
  Serious: No
  Sender: FDA-Public Use
  Company Number: US-ABBOTT-08P-163-0468935-00

PATIENT
  Sex: Female
  Weight: 53.572 kg

DRUGS (5)
  1. HUMIRA [Suspect]
     Indication: CROHN'S DISEASE
     Dosage: STARTER DOSE
     Route: 050
     Dates: start: 20080803, end: 20080803
  2. HUMIRA [Suspect]
     Dosage: 2 PENS IN 2 WEEKS
     Route: 050
  3. HUMIRA [Suspect]
     Route: 050
  4. MESALAZINE [Concomitant]
     Indication: CROHN'S DISEASE
     Dosage: 2 PILLS DAILY
     Route: 048
     Dates: start: 20010101
  5. OMEPRAZOLE MAGNESIUM [Concomitant]
     Indication: DYSPEPSIA
     Route: 048
     Dates: start: 20010101

REACTIONS (2)
  - INCORRECT DOSE ADMINISTERED [None]
  - INJECTION SITE EXTRAVASATION [None]
